FAERS Safety Report 11080924 (Version 1)
Quarter: 2015Q2

REPORT INFORMATION
  Report Type: Spontaneous
  Country: AU (occurrence: AU)
  Receive Date: 20150501
  Receipt Date: 20150501
  Transmission Date: 20150821
  Serious: Yes (Hospitalization)
  Sender: FDA-Public Use
  Company Number: AU-CELGENE-AUS-2015044997

PATIENT
  Age: 83 Year
  Sex: Female
  Weight: 78.4 kg

DRUGS (3)
  1. SOMAC [Concomitant]
     Active Substance: PANTOPRAZOLE SODIUM
     Indication: PEPTIC ULCER
     Route: 065
  2. AZACITIDINE INJECTABLE [Suspect]
     Active Substance: AZACITIDINE
     Indication: MYELODYSPLASTIC SYNDROME
     Route: 065
     Dates: start: 20150413, end: 20150416
  3. AZACITIDINE INJECTABLE [Suspect]
     Active Substance: AZACITIDINE
     Dosage: 40 MILLIGRAM
     Route: 065
     Dates: start: 20150420, end: 20150421

REACTIONS (1)
  - Loss of consciousness [Recovered/Resolved]

NARRATIVE: CASE EVENT DATE: 20150416
